FAERS Safety Report 11406144 (Version 1)
Quarter: 2015Q3

REPORT INFORMATION
  Report Type: Spontaneous
  Country: RU (occurrence: RU)
  Receive Date: 20150821
  Receipt Date: 20150821
  Transmission Date: 20151125
  Serious: Yes (Hospitalization, Other)
  Sender: FDA-Public Use
  Company Number: RU-GLAXOSMITHKLINE INC.-RU2015GSK119130

PATIENT
  Age: 40 Year
  Sex: Male

DRUGS (3)
  1. STOCRIN [Suspect]
     Active Substance: EFAVIRENZ
     Indication: HIV INFECTION
     Dosage: UNK
     Dates: start: 2015
  2. VIDEX [Suspect]
     Active Substance: DIDANOSINE
     Indication: HIV INFECTION
     Dosage: UNK
     Dates: start: 201507
  3. LAMIVUDINE. [Suspect]
     Active Substance: LAMIVUDINE
     Indication: HIV INFECTION
     Dosage: UNK
     Dates: start: 201507

REACTIONS (5)
  - Pancytopenia [Unknown]
  - Anaemia [Recovering/Resolving]
  - Abdominal pain [Unknown]
  - Hepatic cirrhosis [Unknown]
  - Leukopenia [Unknown]

NARRATIVE: CASE EVENT DATE: 2015
